FAERS Safety Report 6446004-9 (Version None)
Quarter: 2009Q4

REPORT INFORMATION
  Report Type: 
  Country: None (occurrence: None)
  Receive Date: 20091119
  Receipt Date: 20090702
  Transmission Date: 20100525
  Serious: No
  Sender: FDA-Public Use
  Company Number: A0796510A

PATIENT
  Age: 54 Year
  Sex: Female

DRUGS (1)
  1. BUPROPION HYDROCHLORIDE [Suspect]
     Dosage: 300MGD PER DAY
     Route: 048

REACTIONS (1)
  - DRUG INEFFECTIVE [None]
